FAERS Safety Report 6376133-X (Version None)
Quarter: 2009Q3

REPORT INFORMATION
  Report Type: 
  Country: None (occurrence: None)
  Receive Date: 20090918
  Receipt Date: 20090907
  Transmission Date: 20100115
  Serious: Yes (Hospitalization)
  Sender: FDA-Public Use
  Company Number: 2009AL005918

PATIENT
  Age: 70 Year
  Sex: Male

DRUGS (2)
  1. IBUPROFEN TABLETS [Suspect]
  2. EPIRUBICIN HCL [Suspect]

REACTIONS (3)
  - DEEP VEIN THROMBOSIS [None]
  - PLEURITIC PAIN [None]
  - PULMONARY EMBOLISM [None]
